FAERS Safety Report 18308936 (Version 1)
Quarter: 2020Q3

REPORT INFORMATION
  Report Type: Spontaneous
  Country: DE (occurrence: DE)
  Receive Date: 20200924
  Receipt Date: 20200924
  Transmission Date: 20201103
  Serious: Yes (Hospitalization)
  Sender: FDA-Public Use
  Company Number: DE-BAYER-2020-198697

PATIENT
  Age: 92 Year
  Sex: Female

DRUGS (8)
  1. KREON [Concomitant]
     Active Substance: PANCRELIPASE
     Dosage: 25000 IU, TID
  2. DULCOLAX (BISACODYL) [Concomitant]
     Active Substance: BISACODYL
     Dosage: PRN
  3. QUETIAPIN [Concomitant]
     Active Substance: QUETIAPINE
     Dosage: 25 MG, QD 0?0?0?1
  4. UNACID [AMPICILLIN SODIUM;SULBACTAM SODIUM] [Suspect]
     Active Substance: AMPICILLIN SODIUM\SULBACTAM SODIUM
     Dosage: UNK
  5. TORASEMID [Suspect]
     Active Substance: TORSEMIDE
     Dosage: 10 MG, BID
  6. LEVOTHYROXIN [Concomitant]
     Active Substance: LEVOTHYROXINE
     Dosage: 75 ?G, OM
  7. CIPROFLOXACIN. [Suspect]
     Active Substance: CIPROFLOXACIN
     Dosage: UNK
  8. ESCITALOPRAM [Concomitant]
     Active Substance: ESCITALOPRAM OXALATE
     Dosage: 10 MG, OM

REACTIONS (4)
  - Renal impairment [Recovering/Resolving]
  - General physical health deterioration [Recovering/Resolving]
  - Peripheral swelling [Recovering/Resolving]
  - Dehydration [Recovering/Resolving]
